FAERS Safety Report 20077059 (Version 1)
Quarter: 2021Q4

REPORT INFORMATION
  Report Type: Spontaneous
  Country: US (occurrence: US)
  Receive Date: 20211116
  Receipt Date: 20211116
  Transmission Date: 20220303
  Serious: Yes (Hospitalization)
  Sender: FDA-Public Use
  Company Number: US-MYLANLABS-2021M1084426

PATIENT
  Age: 60 Year
  Sex: Male

DRUGS (6)
  1. TESTOSTERONE [Suspect]
     Active Substance: TESTOSTERONE
     Indication: Muscle building therapy
     Dosage: INJECTABLE
     Route: 065
  2. DIANABOL [Suspect]
     Active Substance: METHANDROSTENOLONE
     Indication: Muscle building therapy
     Dosage: INJECTABLE
     Route: 065
  3. IMMUNE GLOBULIN NOS [Suspect]
     Active Substance: IMMUNE GLOBULIN NOS
     Indication: Leukoencephalopathy
     Dosage: OVER A 4 DAY COURSE
     Route: 042
     Dates: start: 2018, end: 2018
  4. LACOSAMIDE [Concomitant]
     Active Substance: LACOSAMIDE
     Indication: Leukoencephalopathy
     Dosage: UNK
     Route: 065
     Dates: start: 2018, end: 2018
  5. METHYLPREDNISOLONE [Concomitant]
     Active Substance: METHYLPREDNISOLONE
     Indication: Leukoencephalopathy
     Dosage: 1 GRAM, QD
     Route: 042
     Dates: start: 2018, end: 2018
  6. METHYLPREDNISOLONE [Concomitant]
     Active Substance: METHYLPREDNISOLONE
     Dosage: 1 GRAM, QD
     Route: 042
     Dates: start: 2018, end: 2018

REACTIONS (5)
  - Leukoencephalopathy [Recovering/Resolving]
  - Drug abuse [Recovering/Resolving]
  - Unresponsive to stimuli [Recovering/Resolving]
  - Loss of personal independence in daily activities [Recovering/Resolving]
  - Aphasia [Recovering/Resolving]

NARRATIVE: CASE EVENT DATE: 20180101
